FAERS Safety Report 9456341 (Version 1)
Quarter: 2013Q3

REPORT INFORMATION
  Report Type: Spontaneous
  Country: US (occurrence: US)
  Receive Date: 20130813
  Receipt Date: 20130813
  Transmission Date: 20140515
  Serious: Yes (Hospitalization, Other)
  Sender: FDA-Public Use
  Company Number: US-PFIZER INC-2013230294

PATIENT
  Age: 34 Year
  Sex: Male
  Weight: 97.51 kg

DRUGS (15)
  1. DILANTIN [Suspect]
     Indication: CONVULSION
     Dosage: 100 MG, 3X/DAY
     Route: 042
     Dates: start: 20021127
  2. DILANTIN [Suspect]
     Indication: CONVULSION
     Dosage: 100 MG, 3X/DAY
     Route: 048
     Dates: start: 20021127
  3. DILANTIN [Suspect]
     Dosage: 900 MG, (300MG 3 CAPSULES) EVERY NIGHT AT BED TIME (QHS)
     Route: 048
     Dates: start: 20021203
  4. DILANTIN [Suspect]
     Dosage: 300 MG, 1X/DAY, BEFORE NOON
     Route: 048
     Dates: start: 20021204
  5. DILANTIN [Suspect]
     Dosage: 900 MG, (300MG 3 CAPSULES) BEFORE NOON (QAM)
     Route: 048
     Dates: start: 20021205
  6. DILANTIN [Suspect]
     Dosage: 300 MG, 1X/DAY, EVERY MORNING
     Dates: start: 20021209, end: 20021209
  7. VICODIN [Concomitant]
     Indication: PAIN
     Dosage: EVERY 8 HOURS AS NEEDED
     Dates: start: 20021127
  8. PEPCID [Concomitant]
     Dosage: 20 MG, 2X/DAY
     Route: 048
     Dates: start: 20021127
  9. DECADRON [Concomitant]
     Dosage: 4 MG, 4X/DAY
     Dates: start: 20021127
  10. CEREBYX [Concomitant]
     Dosage: 1000 MG, AS LOADING DOSE
     Route: 042
     Dates: start: 20021127
  11. MORPHINE [Concomitant]
     Dosage: 2 MG/ML, AS NEEDED FOR EVERY 2-3 HOURS
     Route: 042
     Dates: start: 20021203
  12. PHENOBARBITAL [Concomitant]
     Dosage: 200 MG, 2X/DAY
     Route: 048
     Dates: start: 20021205
  13. TYLENOL [Concomitant]
     Dosage: UNK
     Dates: start: 20021205
  14. NICODERM [Concomitant]
     Dosage: 21 MG, DAILY
     Route: 061
     Dates: start: 20021206
  15. TRILEPTAL [Concomitant]
     Dosage: 300 MG, 3X/DAY
     Dates: start: 20021208

REACTIONS (2)
  - Stevens-Johnson syndrome [Unknown]
  - Toxic epidermal necrolysis [Unknown]
